FAERS Safety Report 4998714-8 (Version None)
Quarter: 2006Q2

REPORT INFORMATION
  Report Type: 
  Country: None (occurrence: None)
  Receive Date: 20060510
  Receipt Date: 20060424
  Transmission Date: 20061013
  Serious: Yes (Other)
  Sender: FDA-Public Use
  Company Number: SG-BOEHRINGER INGELHEIM PHARMACEUTICALS, INC.-2006-DE-02069GD

PATIENT
  Age: 67 Year
  Sex: Male

DRUGS (2)
  1. ASPIRIN [Suspect]
     Indication: ANTIPLATELET THERAPY
  2. DIPYRIDAMOLE [Suspect]
     Indication: ANTIPLATELET THERAPY

REACTIONS (3)
  - CEREBRAL ARTERY EMBOLISM [None]
  - DRUG INEFFECTIVE [None]
  - MUSCULAR WEAKNESS [None]
